FAERS Safety Report 14946742 (Version 1)
Quarter: 2018Q2

REPORT INFORMATION
  Report Type: Spontaneous
  Country: US (occurrence: US)
  Receive Date: 20180508
  Receipt Date: 20180508
  Transmission Date: 20180711
  Serious: Yes (Disabling, Other)
  Sender: FDA-Public Use
  Company Number: None

PATIENT
  Age: 45 Year
  Sex: Female
  Weight: 70.31 kg

DRUGS (8)
  1. CLONAZEPAM. [Concomitant]
     Active Substance: CLONAZEPAM
  2. CYMBALTA [Concomitant]
     Active Substance: DULOXETINE HYDROCHLORIDE
  3. WELLBUTRIN [Concomitant]
     Active Substance: BUPROPION HYDROCHLORIDE
  4. SINGULAIR [Concomitant]
     Active Substance: MONTELUKAST SODIUM
  5. ODENSTERON [Concomitant]
  6. MIRENA [Suspect]
     Active Substance: LEVONORGESTREL
  7. BUSPAR [Concomitant]
     Active Substance: BUSPIRONE HYDROCHLORIDE
  8. MAXALT [Concomitant]
     Active Substance: RIZATRIPTAN BENZOATE

REACTIONS (10)
  - Migraine [None]
  - Panic attack [None]
  - Headache [None]
  - Weight increased [None]
  - Muscle spasms [None]
  - Mood swings [None]
  - Pain [None]
  - Chest discomfort [None]
  - Anxiety [None]
  - Libido disorder [None]

NARRATIVE: CASE EVENT DATE: 20180505
